FAERS Safety Report 20810018 (Version 6)
Quarter: 2025Q3

REPORT INFORMATION
  Report Type: Report from Study
  Country: CN (occurrence: CN)
  Receive Date: 20220510
  Receipt Date: 20250709
  Transmission Date: 20251020
  Serious: Yes (Hospitalization)
  Sender: DAIICHI
  Company Number: CN-DSJP-DSE-2022-115558

PATIENT
  Age: 69 Year
  Sex: Female
  Weight: 50 kg

DRUGS (23)
  1. EDOXABAN [Suspect]
     Active Substance: EDOXABAN
     Indication: Atrial fibrillation
     Dosage: 30 MG, QD
     Route: 065
     Dates: start: 20210629, end: 2021
  2. EDOXABAN [Suspect]
     Active Substance: EDOXABAN
     Dosage: 30 MG, QD
     Route: 065
     Dates: start: 2021, end: 2021
  3. EDOXABAN [Suspect]
     Active Substance: EDOXABAN
     Dosage: 30 MG, QD
     Route: 065
     Dates: start: 20210929, end: 2021
  4. EDOXABAN [Suspect]
     Active Substance: EDOXABAN
     Dosage: 30 MG, QD
     Route: 065
     Dates: start: 2021, end: 2021
  5. EDOXABAN [Suspect]
     Active Substance: EDOXABAN
     Dosage: 30 MG, QD
     Route: 065
     Dates: start: 20211228, end: 20220217
  6. EDOXABAN [Suspect]
     Active Substance: EDOXABAN
     Dosage: 30 MG, QD
     Route: 065
     Dates: start: 20220223, end: 20220416
  7. UNSPECIFIED INGREDIENT [Concomitant]
     Active Substance: UNSPECIFIED INGREDIENT
     Indication: Atrial fibrillation
     Dosage: UNK, QD
     Route: 065
     Dates: start: 2016
  8. RUN ZHONG [Concomitant]
     Indication: Chronic hepatitis B
     Route: 048
     Dates: start: 2015
  9. LI GANKANG [Concomitant]
     Indication: Liver disorder
     Dosage: 8 G, SINGLE (ONCE)
     Route: 042
     Dates: start: 20220415, end: 20220415
  10. LI GANKANG [Concomitant]
     Indication: Prophylaxis
  11. BAI XINUO [Concomitant]
     Indication: Liver disorder
     Route: 042
     Dates: start: 20220415, end: 20220424
  12. BAI XINUO [Concomitant]
     Indication: Prophylaxis
  13. POTASSIUM CHLORIDE [Concomitant]
     Active Substance: POTASSIUM CHLORIDE
     Indication: Mineral supplementation
     Dosage: 10 MILLILITER/CUBIC CENTIMETER, SINGLE (ONCE)
     Route: 042
     Dates: start: 20220415, end: 20220424
  14. AO JIA MING [Concomitant]
     Indication: Gastric mucosal lesion
     Dosage: 20 MG, SINGLE (ONCE)
     Route: 042
     Dates: start: 20220415, end: 20220415
  15. WEI FUAN [Concomitant]
     Indication: Gastrointestinal motility disorder
     Dosage: 10 MG, SINGLE (ONCE)
     Route: 042
     Dates: start: 20220415, end: 20220415
  16. MAGNESIUM ISOGLYCYRRHIZINATE [Concomitant]
     Active Substance: MAGNESIUM ISOGLYCYRRHIZINATE
     Indication: Liver disorder
     Route: 042
     Dates: start: 20220417, end: 20220424
  17. MAGNESIUM ISOGLYCYRRHIZINATE [Concomitant]
     Active Substance: MAGNESIUM ISOGLYCYRRHIZINATE
     Indication: Prophylaxis
  18. LAN MEIXIN [Concomitant]
     Indication: Gastrointestinal disorder prophylaxis
     Dosage: 30 MG, BID
     Route: 042
     Dates: start: 20220417, end: 20220424
  19. BU DA XIU [Concomitant]
     Indication: Mineral supplementation
     Dosage: 1 G, BID
     Route: 048
     Dates: start: 20220418
  20. TIAN QING GAN PING [Concomitant]
     Indication: Liver disorder
     Dosage: 3 DOSAGE FORM, TID
     Route: 048
     Dates: start: 20220425
  21. TIAN QING GAN PING [Concomitant]
     Indication: Prophylaxis
  22. HU GAN PIAN [Concomitant]
     Indication: Liver disorder
     Dosage: 1.44 G, TID
     Route: 048
     Dates: start: 20220425
  23. HU GAN PIAN [Concomitant]
     Indication: Prophylaxis

REACTIONS (4)
  - Drug-induced liver injury [Recovered/Resolved with Sequelae]
  - Liver function test abnormal [Recovering/Resolving]
  - Haematemesis [Recovered/Resolved]
  - Cholecystitis [Recovering/Resolving]

NARRATIVE: CASE EVENT DATE: 20220301
